FAERS Safety Report 9566058 (Version 1)
Quarter: 2013Q3

REPORT INFORMATION
  Report Type: Not Available
  Country: IT (occurrence: IT)
  Receive Date: 20130930
  Receipt Date: 20130930
  Transmission Date: 20140515
  Serious: Yes (Other)
  Sender: FDA-Public Use
  Company Number: IT-NAPPMUNDI-GBR-2013-0015790

PATIENT
  Age: 83 Year
  Sex: Female

DRUGS (3)
  1. OXYCONTIN 10 MG COMPRESSE A RILASCIO PROLUNGATO [Suspect]
     Indication: PRODUCT USED FOR UNKNOWN INDICATION
     Dosage: 20 MG, UNK
     Route: 048
     Dates: start: 20130101, end: 20130704
  2. EUTIROX [Concomitant]
     Dosage: 50 MCG, UNK
  3. CARDIOASPIRIN [Concomitant]
     Dosage: 100 MG, UNK

REACTIONS (2)
  - Contusion [Recovered/Resolved]
  - Syncope [Recovered/Resolved]
